FAERS Safety Report 17173643 (Version 3)
Quarter: 2020Q2

REPORT INFORMATION
  Report Type: Other
  Country: SE (occurrence: SE)
  Receive Date: 20191219
  Receipt Date: 20200415
  Transmission Date: 20200713
  Serious: Yes (Other)
  Sender: FDA-Public Use
  Company Number: SE-GE HEALTHCARE LIFE SCIENCES-2019CSU006381

PATIENT

DRUGS (2)
  1. VISIPAQUE [Suspect]
     Active Substance: IODIXANOL
     Indication: X-RAY
     Dosage: 3 ML, SINGLE
     Route: 048
     Dates: start: 20120627, end: 20120627
  2. VISIPAQUE [Suspect]
     Active Substance: IODIXANOL
     Indication: NECROTISING ENTEROCOLITIS NEONATAL

REACTIONS (1)
  - Hypothyroidism [Not Recovered/Not Resolved]

NARRATIVE: CASE EVENT DATE: 201207
